FAERS Safety Report 7627693-X (Version None)
Quarter: 2011Q3

REPORT INFORMATION
  Report Type: 
  Country: None (occurrence: None)
  Receive Date: 20110721
  Receipt Date: 20110715
  Transmission Date: 20111222
  Serious: Yes (Other)
  Sender: FDA-Public Use
  Company Number: JP-ALLERGAN-1016988US

PATIENT
  Age: 70 Year
  Sex: Male

DRUGS (1)
  1. BOTOX [Suspect]
     Indication: FACIAL SPASM
     Dosage: 18 UNITS, SINGLE
     Route: 030
     Dates: start: 20101221, end: 20101221

REACTIONS (11)
  - HYPOAESTHESIA ORAL [None]
  - MUSCULAR WEAKNESS [None]
  - INSOMNIA [None]
  - SKIN TIGHTNESS [None]
  - EYELID OEDEMA [None]
  - ABNORMAL SENSATION IN EYE [None]
  - PERICORONITIS [None]
  - VIITH NERVE PARALYSIS [None]
  - FACIAL PARESIS [None]
  - GAIT DISTURBANCE [None]
  - DYSARTHRIA [None]
